FAERS Safety Report 9728548 (Version 2)
Quarter: 2014Q2

REPORT INFORMATION
  Report Type: Spontaneous
  Country: US (occurrence: US)
  Receive Date: 20131204
  Receipt Date: 20140411
  Transmission Date: 20141212
  Serious: Yes (Death)
  Sender: FDA-Public Use
  Company Number: US-INCYTE CORPORATION-2013IN002852

PATIENT
  Age: 77 Year
  Sex: Male

DRUGS (4)
  1. JAKAFI [Suspect]
     Dosage: 20 MG, BID
     Route: 048
     Dates: start: 20131031, end: 20131125
  2. JAKAFI [Suspect]
     Dosage: 10 MG, BID
     Route: 065
  3. ALLOPURINOL [Concomitant]
  4. TYLENOL [Concomitant]

REACTIONS (1)
  - Death [Fatal]
